FAERS Safety Report 7389115-6 (Version None)
Quarter: 2011Q2

REPORT INFORMATION
  Report Type: 
  Country: None (occurrence: None)
  Receive Date: 20110401
  Receipt Date: 20110322
  Transmission Date: 20111010
  Serious: Yes (Life-Threatening, Other)
  Sender: FDA-Public Use
  Company Number: US-JNJFOC-20110309479

PATIENT
  Age: 67 Year
  Sex: Male
  Weight: 86.18 kg

DRUGS (2)
  1. ROGAINE EXTRA STRENGTH (FOR MEN) [Suspect]
     Route: 061
  2. ROGAINE EXTRA STRENGTH (FOR MEN) [Suspect]
     Indication: ALOPECIA
     Dosage: HALF CAPFUL
     Route: 061

REACTIONS (1)
  - MYOCARDIAL INFARCTION [None]
